FAERS Safety Report 17043433 (Version 1)
Quarter: 2019Q4

REPORT INFORMATION
  Report Type: Spontaneous
  Country: US (occurrence: US)
  Receive Date: 20191118
  Receipt Date: 20191118
  Transmission Date: 20200122
  Serious: No
  Sender: FDA-Public Use
  Company Number: US-THERAPEUTICSMD-2019TMD03176

PATIENT
  Age: 52 Year
  Sex: Female
  Weight: 85.71 kg

DRUGS (2)
  1. BIJUVA [Suspect]
     Active Substance: ESTRADIOL\PROGESTERONE
     Indication: HOT FLUSH
     Dosage: 1 CAPSULES, 1X/DAY
     Route: 048
     Dates: start: 20190521, end: 20190909
  2. BIJUVA [Suspect]
     Active Substance: ESTRADIOL\PROGESTERONE
     Indication: MENOPAUSAL SYMPTOMS

REACTIONS (5)
  - Therapeutic product effect decreased [Recovered/Resolved]
  - Night sweats [Unknown]
  - Product substitution issue [Recovered/Resolved]
  - Hot flush [Unknown]
  - Middle insomnia [Unknown]

NARRATIVE: CASE EVENT DATE: 20190722
